FAERS Safety Report 5148075-9 (Version None)
Quarter: 2006Q4

REPORT INFORMATION
  Report Type: 
  Country: None (occurrence: None)
  Receive Date: 20061110
  Receipt Date: 20061027
  Transmission Date: 20070319
  Serious: Yes (Disabling)
  Sender: FDA-Public Use
  Company Number: CH-BAYER-200615045GDS

PATIENT
  Age: 71 Year
  Sex: Male
  Weight: 73 kg

DRUGS (3)
  1. AVELOX [Suspect]
     Indication: PNEUMONIA BACTERIAL
     Dosage: TOTAL DAILY DOSE: 400 MG  UNIT DOSE: 400 MG
     Route: 048
     Dates: start: 20060812, end: 20060818
  2. NOVALGIN [Concomitant]
     Indication: PLEURAL DISORDER
     Route: 048
  3. VOLTAREN [Concomitant]
     Indication: BACK PAIN
     Route: 048

REACTIONS (2)
  - VISUAL ACUITY REDUCED [None]
  - VISUAL DISTURBANCE [None]
